FAERS Safety Report 5304708-5 (Version None)
Quarter: 2007Q2

REPORT INFORMATION
  Report Type: 
  Country: None (occurrence: None)
  Receive Date: 20070423
  Receipt Date: 20070419
  Transmission Date: 20071010
  Serious: Yes (Congenital Anomaly)
  Sender: FDA-Public Use
  Company Number: HQWYE212511APR07

PATIENT

DRUGS (6)
  1. EFFEXOR XR [Suspect]
     Indication: ANXIETY
     Route: 064
     Dates: start: 20040801
  2. EFFEXOR XR [Suspect]
     Indication: DEPRESSION
  3. VITAMIN B6 [Concomitant]
  4. FOLIC ACID [Concomitant]
  5. CALCIUM CARBONATE [Concomitant]
  6. VITAMIN B-12 [Concomitant]

REACTIONS (2)
  - COARCTATION OF THE AORTA [None]
  - DRUG EXPOSURE DURING PREGNANCY [None]
